FAERS Safety Report 4906731-9 (Version None)
Quarter: 2006Q1

REPORT INFORMATION
  Report Type: 
  Country: None (occurrence: None)
  Receive Date: 20060209
  Receipt Date: 20050331
  Transmission Date: 20060701
  Serious: Yes (Hospitalization, Disabling)
  Sender: FDA-Public Use
  Company Number: US-ROCHE-400500

PATIENT
  Age: 38 Year
  Sex: Female
  Weight: 63.5 kg

DRUGS (2)
  1. ACCUTANE [Suspect]
     Route: 048
     Dates: start: 19980216, end: 19980615
  2. DEMULEN 1/35-21 [Concomitant]
     Route: 048

REACTIONS (43)
  - ABDOMINAL PAIN [None]
  - ABDOMINAL PAIN UPPER [None]
  - ACROCHORDON [None]
  - AMBLYOPIA [None]
  - ARTHRALGIA [None]
  - ARTHROPATHY [None]
  - BEHCET'S SYNDROME [None]
  - BONE PAIN [None]
  - C-REACTIVE PROTEIN INCREASED [None]
  - COLITIS [None]
  - COLON ADENOMA [None]
  - CROHN'S DISEASE [None]
  - DEFAECATION URGENCY [None]
  - DEPRESSION [None]
  - DIARRHOEA [None]
  - DISORIENTATION [None]
  - DIZZINESS [None]
  - ERYTHEMA NODOSUM [None]
  - EYE IRRITATION [None]
  - EYE PAIN [None]
  - EYE PRURITUS [None]
  - FATIGUE [None]
  - GASTROINTESTINAL DISORDER [None]
  - GRANULOMA [None]
  - HAEMOGLOBIN DECREASED [None]
  - HAEMORRHOIDS [None]
  - INFLAMMATION [None]
  - INFLAMMATORY BOWEL DISEASE [None]
  - INTESTINAL HAEMORRHAGE [None]
  - INTRAOCULAR PRESSURE INCREASED [None]
  - MULTI-ORGAN DISORDER [None]
  - OCULAR HYPERAEMIA [None]
  - ORAL MUCOSA EROSION [None]
  - PHOTOPHOBIA [None]
  - PLATELET COUNT INCREASED [None]
  - RECTAL HAEMORRHAGE [None]
  - RECTAL POLYP [None]
  - RED BLOOD CELL COUNT DECREASED [None]
  - RED BLOOD CELL SEDIMENTATION RATE DECREASED [None]
  - TREATMENT NONCOMPLIANCE [None]
  - VAGINAL ULCERATION [None]
  - VISION BLURRED [None]
  - VISUAL ACUITY REDUCED [None]
